FAERS Safety Report 5134895-3 (Version None)
Quarter: 2006Q4

REPORT INFORMATION
  Report Type: 
  Country: None (occurrence: None)
  Receive Date: 20061025
  Receipt Date: 20060823
  Transmission Date: 20070319
  Serious: Yes (Death, Hospitalization)
  Sender: FDA-Public Use
  Company Number: DE-BRISTOL-MYERS SQUIBB COMPANY-13489737

PATIENT
  Age: 42 Year
  Sex: Female

DRUGS (7)
  1. ABILIFY [Suspect]
     Indication: SCHIZOAFFECTIVE DISORDER
     Route: 048
     Dates: start: 20060626, end: 20060701
  2. ABILIFY [Suspect]
     Indication: DEPRESSIVE DELUSION
     Route: 048
     Dates: start: 20060626, end: 20060701
  3. GLIANIMON [Suspect]
     Indication: SCHIZOAFFECTIVE DISORDER
     Route: 048
     Dates: start: 20060623, end: 20060627
  4. GLIANIMON [Suspect]
     Indication: DEPRESSIVE DELUSION
     Route: 048
     Dates: start: 20060623, end: 20060627
  5. LAMOTRIGINE [Concomitant]
     Dates: start: 20060623
  6. APONAL [Concomitant]
     Indication: DEPRESSION
     Route: 042
     Dates: start: 20060627, end: 20060701
  7. AKINETON [Concomitant]
     Indication: EXTRAPYRAMIDAL DISORDER
     Route: 048
     Dates: start: 20060626, end: 20060627

REACTIONS (12)
  - BLOOD CREATINE PHOSPHOKINASE INCREASED [None]
  - BRAIN DEATH [None]
  - CARDIAC ARREST [None]
  - CIRCULATORY COLLAPSE [None]
  - COMA [None]
  - DEHYDRATION [None]
  - GASTROENTERITIS [None]
  - HYPOVOLAEMIA [None]
  - ILEUS PARALYTIC [None]
  - LEUKOCYTOSIS [None]
  - NEUROLEPTIC MALIGNANT SYNDROME [None]
  - PULMONARY ARTERY THROMBOSIS [None]
